FAERS Safety Report 5185761-9 (Version None)
Quarter: 2006Q4

REPORT INFORMATION
  Report Type: 
  Country: None (occurrence: None)
  Receive Date: 20061220
  Receipt Date: 20061212
  Transmission Date: 20070319
  Serious: Yes (Hospitalization)
  Sender: FDA-Public Use
  Company Number: GB-BRISTOL-MYERS SQUIBB COMPANY-13613427

PATIENT
  Sex: Female

DRUGS (3)
  1. PACLITAXEL [Suspect]
     Indication: BREAST CANCER
     Dates: start: 20021112, end: 20021112
  2. CYCLOPHOSPHAMIDE [Suspect]
     Indication: BREAST CANCER
     Dates: start: 20020820, end: 20020820
  3. EPIRUBICIN [Suspect]
     Indication: BREAST CANCER
     Dates: start: 20020820, end: 20020820

REACTIONS (3)
  - CHILLS [None]
  - LETHARGY [None]
  - PYREXIA [None]
